FAERS Safety Report 9734898 (Version 2)
Quarter: 2014Q1

REPORT INFORMATION
  Report Type: Spontaneous
  Country: JP (occurrence: JP)
  Receive Date: 20131206
  Receipt Date: 20140210
  Transmission Date: 20141002
  Serious: Yes (Death, Life-Threatening, Other)
  Sender: FDA-Public Use
  Company Number: JP-TAKEDA-2013TEU002972

PATIENT
  Age: 84 Year
  Sex: 0

DRUGS (13)
  1. TACHOSIL [Suspect]
     Indication: HAEMORRHAGE PROPHYLAXIS
     Dosage: 1 SHEET /1DAY
     Dates: start: 20130521
  2. BERIPLAST P COMBI-SET TISSUE ADHESION [Concomitant]
     Indication: HAEMOSTASIS
     Dosage: 5 ML, QD
     Dates: start: 20130516, end: 20130516
  3. SULBACILLIN [Concomitant]
     Indication: AORTIC ANEURYSM RUPTURE
     Dosage: 15 G X 2
     Dates: start: 20130516, end: 20130523
  4. FINIBAX [Concomitant]
     Indication: UNEVALUABLE EVENT
     Dosage: 0.25 G, BID
     Dates: start: 20130523, end: 20130524
  5. TAKEPRON [Concomitant]
     Indication: AORTIC ANEURYSM RUPTURE
     Dosage: 30 MG, QD
     Dates: start: 20130523, end: 20130524
  6. HANP [Concomitant]
     Indication: UNEVALUABLE EVENT
     Dosage: 0.75 MG X 1
     Dates: start: 20130523, end: 20130524
  7. PERDIPINE [Concomitant]
     Indication: AORTIC ANEURYSM RUPTURE
     Dosage: 10 MG X 1
     Dates: start: 20130523, end: 20130523
  8. HUMAN ALBUMIN [Concomitant]
     Indication: AORTIC ANEURYSM RUPTURE
     Dosage: 250 ML, QD
     Dates: start: 20130522, end: 20130522
  9. RED BLOOD CELLS, CONCENTRATED [Concomitant]
  10. PLATELETS, CONCENTRATED [Concomitant]
  11. PLASMA, FRESH FROZEN [Concomitant]
  12. CRYOPRECIPITATE [Concomitant]
  13. SURGICEL [Concomitant]
     Indication: HAEMOSTASIS
     Dosage: 13 SHEETS, QD
     Dates: start: 20130516, end: 20130516

REACTIONS (1)
  - Sepsis [Fatal]
